FAERS Safety Report 15809049 (Version 1)
Quarter: 2019Q1

REPORT INFORMATION
  Report Type: Spontaneous
  Country: CN (occurrence: CN)
  Receive Date: 20190110
  Receipt Date: 20190110
  Transmission Date: 20190417
  Serious: Yes (Other)
  Sender: FDA-Public Use
  Company Number: CN-009507513-1901CHN001885

PATIENT
  Age: 76 Year
  Sex: Male
  Weight: 72 kg

DRUGS (2)
  1. TIENAM [Suspect]
     Active Substance: CILASTATIN SODIUM\IMIPENEM
     Indication: PNEUMONITIS
     Dosage: 0.5 GRAM, TID
     Route: 041
     Dates: start: 20181001, end: 20181018
  2. SODIUM CHLORIDE. [Suspect]
     Active Substance: SODIUM CHLORIDE
     Indication: ADJUVANT THERAPY
     Dosage: 100 MILLILITER, TID
     Route: 041
     Dates: start: 20181001, end: 20181018

REACTIONS (1)
  - Muscle twitching [Recovering/Resolving]

NARRATIVE: CASE EVENT DATE: 20181007
